FAERS Safety Report 6607589-2 (Version None)
Quarter: 2010Q1

REPORT INFORMATION
  Report Type: 
  Country: None (occurrence: None)
  Receive Date: 20100301
  Receipt Date: 20100215
  Transmission Date: 20100710
  Serious: Yes (Disabling, Other)
  Sender: FDA-Public Use
  Company Number: US-ELI_LILLY_AND_COMPANY-US201002004947

PATIENT
  Sex: Female

DRUGS (15)
  1. FORTEO [Suspect]
     Indication: OSTEOPOROSIS
     Dosage: 20 UG, DAILY (1/D)
     Dates: start: 20090701
  2. LEVOTHYROXINE [Concomitant]
     Indication: THYROID DISORDER
     Dosage: 100 MG, UNK
  3. METFORMIN HYDROCHLORIDE [Concomitant]
     Indication: DIABETES MELLITUS
     Dosage: 500 MG, UNK
  4. DETROL LA [Concomitant]
     Indication: URINARY INCONTINENCE
     Dosage: 4 MG, UNK
  5. ZOLOFT [Concomitant]
     Indication: DEPRESSION
     Dosage: 25 MG, UNK
  6. MIACALCIN [Concomitant]
     Dosage: UNK, UNKNOWN
  7. OMEPRAZOLE [Concomitant]
     Indication: GASTROOESOPHAGEAL REFLUX DISEASE
     Dosage: UNK, UNKNOWN
  8. PACERONE [Concomitant]
     Indication: CARDIAC DISORDER
     Dosage: 200 MG, UNK
  9. METOPROLOL TARTRATE [Concomitant]
     Indication: BLOOD PRESSURE
     Dosage: 12.5 MG, UNK
  10. ASPIRIN [Concomitant]
     Dosage: 81 MG, DAILY (1/D)
  11. LAXATIVES [Concomitant]
     Dosage: UNK, UNKNOWN
  12. MULTI-VITAMIN [Concomitant]
     Dosage: 1 D/F, DAILY (1/D)
  13. MAGNESIUM [Concomitant]
     Dosage: UNK, UNKNOWN
  14. TEMAZEPAM [Concomitant]
     Indication: SLEEP DISORDER
     Dosage: 15 MG, 2/D AT NIGHTTIME
  15. HYDROCODONE [Concomitant]
     Indication: PAIN
     Dosage: UNK, EVERY 8 HRS

REACTIONS (7)
  - BACK INJURY [None]
  - EXPIRED DRUG ADMINISTERED [None]
  - FALL [None]
  - HIP FRACTURE [None]
  - JOINT INJURY [None]
  - NECK INJURY [None]
  - WALKING DISABILITY [None]
